FAERS Safety Report 9805844 (Version 1)
Quarter: 2014Q1

REPORT INFORMATION
  Report Type: Spontaneous
  Country: US (occurrence: None)
  Receive Date: 20140108
  Receipt Date: 20140108
  Transmission Date: 20141002
  Serious: No
  Sender: FDA-Public Use
  Company Number: None

PATIENT
  Age: 72 Year
  Sex: Female
  Weight: 74.5 kg

DRUGS (1)
  1. PACLITAXEL [Suspect]
     Indication: NEOPLASM MALIGNANT
     Dosage: PER HOUR
     Route: 042
     Dates: start: 20131218, end: 20131218

REACTIONS (5)
  - Erythema [None]
  - Chest pain [None]
  - Flushing [None]
  - Pain [None]
  - Hypertension [None]
